FAERS Safety Report 5233748-X (Version None)
Quarter: 2007Q1

REPORT INFORMATION
  Report Type: 
  Country: None (occurrence: None)
  Receive Date: 20070208
  Receipt Date: 20070130
  Transmission Date: 20070707
  Serious: Yes (Other)
  Sender: FDA-Public Use
  Company Number: JP-ROCHE-464018

PATIENT
  Age: 44 Year
  Sex: Female
  Weight: 45 kg

DRUGS (3)
  1. PEGASYS [Suspect]
     Dosage: DISCONTINUED AFTER SEVEN ADMINISTRATIONS.
     Route: 058
     Dates: start: 20060629, end: 20060801
  2. LOXONIN [Concomitant]
     Dosage: ORAL FORMULATION (NOT OTHERWISE SPECIFIED).
     Route: 048
     Dates: start: 20060630, end: 20060801
  3. LENDORMIN [Concomitant]
     Route: 048
     Dates: start: 20060630

REACTIONS (3)
  - MENSTRUAL DISORDER [None]
  - URTICARIA [None]
  - VAGINAL EROSION [None]
